FAERS Safety Report 4528822-7 (Version None)
Quarter: 2004Q4

REPORT INFORMATION
  Report Type: 
  Country: None (occurrence: None)
  Receive Date: 20041216
  Receipt Date: 20041022
  Transmission Date: 20050328
  Serious: Yes (Life-Threatening)
  Sender: FDA-Public Use
  Company Number: JP-GLAXOSMITHKLINE-B0349432A

PATIENT
  Age: 22 Year
  Sex: Male

DRUGS (5)
  1. EPIVIR [Suspect]
     Indication: HIV INFECTION
     Route: 048
     Dates: start: 19980301
  2. VIREAD [Suspect]
     Indication: HIV INFECTION
     Dosage: 1TAB PER DAY
     Route: 048
     Dates: start: 20040213
  3. KALETRA [Suspect]
     Indication: HIV INFECTION
     Route: 048
     Dates: start: 20040213, end: 20040302
  4. REYATAZ [Suspect]
     Indication: HIV INFECTION
     Dosage: 300MG PER DAY
     Route: 048
     Dates: start: 20040219, end: 20040220
  5. STOCRIN [Concomitant]
     Indication: HIV INFECTION
     Dosage: 3CAP PER DAY
     Route: 048
     Dates: start: 20040213, end: 20040221

REACTIONS (6)
  - BRADYCARDIA [None]
  - DRUG INEFFECTIVE [None]
  - HEART RATE DECREASED [None]
  - PIGMENTATION DISORDER [None]
  - PYREXIA [None]
  - RASH [None]
